FAERS Safety Report 6556631-6 (Version None)
Quarter: 2010Q1

REPORT INFORMATION
  Report Type: 
  Country: None (occurrence: None)
  Receive Date: 20100128
  Receipt Date: 20091225
  Transmission Date: 20100710
  Serious: Yes (Death)
  Sender: FDA-Public Use
  Company Number: US-BAYER-201012563GPV

PATIENT
  Age: 31 Year
  Sex: Male

DRUGS (6)
  1. ACETAMINOPHEN/DIPHENHYDRAMINE [Suspect]
     Indication: INTENTIONAL DRUG MISUSE
  2. ALPRAZOLAM [Suspect]
     Indication: DRUG ABUSE
  3. DIAZEPAM [Suspect]
     Indication: DRUG ABUSE
  4. COCAINE [Suspect]
     Indication: DRUG ABUSE
  5. MORPHINE [Suspect]
     Indication: DRUG ABUSE
  6. OXYCODONE [Suspect]
     Indication: DRUG ABUSE

REACTIONS (1)
  - DRUG TOXICITY [None]
